FAERS Safety Report 10229879 (Version 1)
Quarter: 2014Q2

REPORT INFORMATION
  Report Type: Spontaneous
  Country: US (occurrence: None)
  Receive Date: 20140610
  Receipt Date: 20140610
  Transmission Date: 20141212
  Serious: Yes (Other)
  Sender: FDA-Public Use
  Company Number: None

PATIENT
  Age: 56 Year
  Sex: Female

DRUGS (7)
  1. OLYSIO 150MG JASSEN [Suspect]
     Indication: HEPATITIS C
     Route: 048
     Dates: start: 20140418
  2. SOVALDI 400 MG GILEAD [Suspect]
     Indication: HEPATITIS C
     Route: 048
     Dates: start: 20140418
  3. PROPANOLOL [Concomitant]
  4. ZOLPIDEM [Concomitant]
  5. OMEPRAZOLE [Concomitant]
  6. TRAMADOL [Concomitant]
  7. NORTRIPTYLINE [Concomitant]

REACTIONS (3)
  - Fatigue [None]
  - Visual impairment [None]
  - Visual impairment [None]
